FAERS Safety Report 8104588-9 (Version None)
Quarter: 2012Q1

REPORT INFORMATION
  Report Type: 
  Country: None (occurrence: None)
  Receive Date: 20120201
  Receipt Date: 20120120
  Transmission Date: 20120608
  Serious: Yes (Hospitalization)
  Sender: FDA-Public Use
  Company Number: JP-ELI_LILLY_AND_COMPANY-JP201110005833

PATIENT
  Sex: Male
  Weight: 59 kg

DRUGS (42)
  1. KYTRIL [Concomitant]
     Indication: PROPHYLAXIS OF NAUSEA AND VOMITING
     Dosage: 3 MG, OTHER
     Route: 042
     Dates: start: 20110721, end: 20111005
  2. FENTANYL-100 [Concomitant]
     Indication: PAIN IN EXTREMITY
     Dosage: 2.1 MG, OTHER
     Route: 065
     Dates: start: 20111102, end: 20111109
  3. FENTANYL-100 [Concomitant]
     Dosage: 4.2 MG, OTHER
     Route: 065
     Dates: start: 20111110
  4. ZYRTEC [Concomitant]
     Indication: RASH
     Dosage: 20 MG, QD
     Route: 048
     Dates: start: 20100727, end: 20100803
  5. BETAMETHASONE [Concomitant]
     Indication: PROPHYLAXIS OF NAUSEA AND VOMITING
     Dosage: 1 MG, QD
     Dates: start: 20101215, end: 20110423
  6. LEVOFLOXACIN [Concomitant]
     Indication: INFLAMMATION
     Dosage: 500 MG, QD
     Route: 048
     Dates: start: 20111031, end: 20111101
  7. GEMZAR [Suspect]
     Dosage: 1400 MG, OTHER
     Route: 042
     Dates: start: 20101124, end: 20110420
  8. LASIX [Concomitant]
     Indication: OEDEMA
     Dosage: 10 MG, QD
     Dates: start: 20110413, end: 20110511
  9. ALFAROL [Concomitant]
     Indication: RENAL FAILURE CHRONIC
     Dosage: 0.25 MG, QD
     Route: 048
     Dates: start: 20110628
  10. GOSHAJINKIGAN [Concomitant]
     Indication: PAIN IN EXTREMITY
     Dosage: 2.5 G, QD
     Route: 048
     Dates: start: 20111121
  11. CLOBETASOL PROPIONATE [Concomitant]
     Indication: RASH
     Dosage: UNK
     Dates: start: 20110727, end: 20110803
  12. FERROUS CITRATE [Concomitant]
     Indication: IRON DEFICIENCY ANAEMIA
     Dosage: 100 MG, QD
     Route: 048
     Dates: start: 20110517
  13. ALLOPURINOL [Concomitant]
     Indication: HYPERURICAEMIA
     Dosage: 50 MG, QD
     Route: 048
     Dates: start: 20110920
  14. OXYCODONE HCL [Concomitant]
     Indication: PAIN IN EXTREMITY
     Dosage: 10 MG, QD
     Route: 048
     Dates: start: 20111026, end: 20111102
  15. SEROQUEL [Concomitant]
     Indication: RESTLESSNESS
     Dosage: 25 MG, QD
     Route: 048
     Dates: start: 20111116
  16. GRAMALIL [Concomitant]
     Indication: INSOMNIA
     Dosage: 50 MG, QD
     Route: 048
     Dates: start: 20111121
  17. GEMZAR [Suspect]
     Dosage: 1600 MG, OTHER
     Route: 042
     Dates: start: 20101117, end: 20101117
  18. TS 1 [Concomitant]
     Indication: PANCREATIC CARCINOMA STAGE IV
     Dosage: 80 MG, OTHER
     Route: 048
     Dates: start: 20100714, end: 20100810
  19. PRIMPERAN TAB [Concomitant]
     Indication: PROPHYLAXIS OF NAUSEA AND VOMITING
     Dosage: 15 MG, QD
     Route: 048
     Dates: start: 20101027, end: 20110427
  20. BETAMETHASONE [Concomitant]
     Dosage: 2 MG, QD
     Dates: start: 20110601, end: 20111007
  21. PLETAL [Concomitant]
     Indication: PERIPHERAL VASCULAR DISORDER
     Dosage: 50 MG, QD
     Route: 048
     Dates: start: 20110823, end: 20111123
  22. DESYREL [Concomitant]
     Indication: RESTLESSNESS
     Dosage: 75 MG, QD
     Route: 048
     Dates: start: 20111101, end: 20111118
  23. TS 1 [Concomitant]
     Dosage: 100 MG, OTHER
     Route: 048
     Dates: start: 20100811, end: 20101107
  24. MAGNESIUM OXIDE [Concomitant]
     Dosage: 3 G, QD
     Dates: start: 20101108, end: 20110823
  25. LASIX [Concomitant]
     Dosage: 20 MG, QD
     Dates: start: 20110517
  26. LOXONIN [Concomitant]
     Indication: PAIN IN EXTREMITY
     Dosage: 120 MG, QD
     Route: 048
     Dates: start: 20110518, end: 20111019
  27. ARGAMATE [Concomitant]
     Indication: HYPERTENSION
     Dosage: 50 MG, QD
     Route: 048
     Dates: start: 20110726
  28. NOVAMIN [Concomitant]
     Indication: PROPHYLAXIS OF NAUSEA AND VOMITING
     Dosage: 15 MG, OTHER
     Route: 048
     Dates: start: 20111026, end: 20111102
  29. LAXOBERON [Concomitant]
     Indication: CONSTIPATION
     Dosage: UNK
     Route: 048
     Dates: start: 20111118
  30. GEMZAR [Suspect]
     Indication: PANCREATIC CARCINOMA STAGE IV
     Dosage: 1600 MG, OTHER
     Route: 042
     Dates: start: 20100721, end: 20100721
  31. GEMZAR [Suspect]
     Dosage: 1200 MG, OTHER
     Route: 042
     Dates: start: 20110601, end: 20110608
  32. LANSOPRAZOLE [Concomitant]
     Dosage: 15 MG, QD
     Route: 048
     Dates: start: 20110511
  33. KREMEZIN [Concomitant]
     Indication: RENAL FAILURE CHRONIC
     Dosage: 4 G, QD
     Route: 048
     Dates: start: 20110517, end: 20110628
  34. OXYCODONE HCL [Concomitant]
     Indication: PAIN IN EXTREMITY
     Dosage: 2.5 MG, QD
     Route: 048
     Dates: start: 20111031
  35. LENDORMIN [Concomitant]
     Indication: INSOMNIA
     Dosage: 0.25 MG, OTHER
     Route: 048
     Dates: start: 20111031, end: 20111105
  36. TETRAMIDE [Concomitant]
     Indication: RESTLESSNESS
     Dosage: 10 MG, QD
     Route: 048
     Dates: start: 20111110, end: 20111115
  37. GEMZAR [Suspect]
     Dosage: 1000 MG, OTHER
     Route: 042
     Dates: start: 20110629, end: 20111005
  38. ALDACTONE [Concomitant]
     Indication: OEDEMA
     Dosage: 25 MG, QD
     Route: 048
     Dates: start: 20110517
  39. LOXONIN [Concomitant]
     Dosage: 180 MG, QD
     Route: 048
     Dates: start: 20111026, end: 20111102
  40. MICARDIS [Concomitant]
     Indication: HYPERTENSION
     Dosage: 40 MG, QD
     Route: 048
     Dates: start: 20110531
  41. PURSENNIDE [Concomitant]
     Indication: CONSTIPATION
     Dosage: 24 MG, QD
     Route: 048
     Dates: start: 20110824
  42. DORNER [Concomitant]
     Indication: PERIPHERAL VASCULAR DISORDER
     Dosage: 120 UG, QD
     Route: 048
     Dates: start: 20111005, end: 20111102

REACTIONS (10)
  - HYPERURICAEMIA [None]
  - OEDEMA [None]
  - CONSTIPATION [None]
  - IRON DEFICIENCY ANAEMIA [None]
  - RESTLESSNESS [None]
  - RASH [None]
  - PAIN IN EXTREMITY [None]
  - SKIN ULCER [None]
  - RENAL FAILURE CHRONIC [None]
  - HYPERTENSION [None]
